FAERS Safety Report 8525145-6 (Version None)
Quarter: 2012Q3

REPORT INFORMATION
  Report Type: 
  Country: None (occurrence: None)
  Receive Date: 20120720
  Receipt Date: 20120709
  Transmission Date: 20120928
  Serious: Yes (Hospitalization)
  Sender: FDA-Public Use
  Company Number: SG-BAXTER-2012BAX011285

PATIENT
  Age: 44 Year
  Sex: Male
  Weight: 76.3 kg

DRUGS (9)
  1. VINCRISTINE SULFATE [Suspect]
     Indication: NON-HODGKIN'S LYMPHOMA
     Route: 042
     Dates: start: 20111102
  2. HYOSCINE BUTYLBROMIDE [Concomitant]
     Indication: ABDOMINAL DISCOMFORT
     Route: 065
     Dates: start: 20120307
  3. CYCLOPHOSPHAMIDE [Suspect]
     Indication: NON-HODGKIN'S LYMPHOMA
     Route: 042
     Dates: start: 20111102
  4. FAMOTIDINE [Concomitant]
     Indication: ABDOMINAL DISCOMFORT
     Route: 065
     Dates: start: 20120307
  5. CIPROFLOXACIN [Concomitant]
     Indication: INFECTION PROPHYLAXIS
     Route: 065
     Dates: start: 20120308, end: 20120314
  6. MAGNESIUM CARBONATE [Concomitant]
     Route: 065
     Dates: start: 20120307
  7. INOTUZUMAB OZOGAMICIN [Suspect]
     Indication: NON-HODGKIN'S LYMPHOMA
     Route: 042
     Dates: start: 20111103
  8. PREDNISONE [Suspect]
     Indication: NON-HODGKIN'S LYMPHOMA
     Route: 048
     Dates: start: 20111102
  9. RITUXIMAB [Suspect]
     Indication: NON-HODGKIN'S LYMPHOMA
     Route: 042
     Dates: start: 20111102

REACTIONS (1)
  - ILEITIS [None]
